FAERS Safety Report 4915165-2 (Version None)
Quarter: 2006Q1

REPORT INFORMATION
  Report Type: 
  Country: None (occurrence: None)
  Receive Date: 20060216
  Receipt Date: 20060216
  Transmission Date: 20060701
  Serious: Yes (Hospitalization)
  Sender: FDA-Public Use
  Company Number: None

PATIENT
  Sex: Male

DRUGS (5)
  1. INSULIN [Suspect]
     Dosage: UNKNOWN PRIOR TO ADMISSION
     Route: 065
  2. LOPID [Concomitant]
  3. PREDNISONE [Concomitant]
  4. LASIX [Concomitant]
  5. NITROGLYCERIN [Concomitant]

REACTIONS (2)
  - BLOOD GLUCOSE DECREASED [None]
  - MENTAL STATUS CHANGES [None]
